FAERS Safety Report 17128909 (Version 19)
Quarter: 2021Q3

REPORT INFORMATION
  Report Type: Spontaneous
  Country: CA (occurrence: CA)
  Receive Date: 20191209
  Receipt Date: 20210707
  Transmission Date: 20211014
  Serious: Yes (Other)
  Sender: FDA-Public Use
  Company Number: CA-PFIZER INC-2019511389

PATIENT
  Age: 80 Year
  Sex: Female
  Weight: 68 kg

DRUGS (5)
  1. IBRANCE [Suspect]
     Active Substance: PALBOCICLIB
     Indication: BREAST CANCER METASTATIC
     Dosage: 125 MG, CYCLIC (DAILY ON DAY 1 TO 21)
     Route: 048
     Dates: start: 20190820
  2. IBRANCE [Suspect]
     Active Substance: PALBOCICLIB
     Dosage: 125 MG, CYCLIC (DAILY DAY 1 TO 21)
     Route: 048
     Dates: start: 20200213, end: 2020
  3. IBRANCE [Suspect]
     Active Substance: PALBOCICLIB
     Dosage: 100 MG, CYCLIC (DAILY DAY 1 TO 21, 7 DAYS OFF)
     Route: 048
     Dates: start: 2020
  4. IBRANCE [Suspect]
     Active Substance: PALBOCICLIB
     Dosage: 75 MG, CYCLIC ( DAY 1 TO 21, 7 DAYS OFF)
     Route: 048
     Dates: start: 20210312
  5. IBRANCE [Suspect]
     Active Substance: PALBOCICLIB
     Dosage: 125 MG, CYCLIC (DAILY ON DAY 1 TO DAY 21 DAYS 01 TO 28 ? CYCLE 4 OF 12)
     Route: 048
     Dates: start: 20200103, end: 2020

REACTIONS (7)
  - Weight fluctuation [Not Recovered/Not Resolved]
  - Bone marrow infiltration [Unknown]
  - Neutropenia [Not Recovered/Not Resolved]
  - Body surface area increased [Recovered/Resolved]
  - Haemoglobin decreased [Recovering/Resolving]
  - Platelet count decreased [Recovering/Resolving]
  - White blood cell count decreased [Recovering/Resolving]

NARRATIVE: CASE EVENT DATE: 20191017
